FAERS Safety Report 19542292 (Version 3)
Quarter: 2021Q4

REPORT INFORMATION
  Report Type: Spontaneous
  Country: NL (occurrence: NL)
  Receive Date: 20210714
  Receipt Date: 20211224
  Transmission Date: 20220303
  Serious: Yes (Death)
  Sender: FDA-Public Use
  Company Number: NL-JNJFOC-20210717519

PATIENT
  Age: 28 Year
  Sex: Male
  Weight: 98 kg

DRUGS (4)
  1. TREMFYA [Suspect]
     Active Substance: GUSELKUMAB
     Indication: Hidradenitis
     Route: 058
     Dates: start: 20200902, end: 20210512
  2. TREMFYA [Suspect]
     Active Substance: GUSELKUMAB
     Route: 058
     Dates: start: 20210317
  3. TREMFYA [Suspect]
     Active Substance: GUSELKUMAB
  4. RESORCINOL [Concomitant]
     Active Substance: RESORCINOL
     Indication: Product used for unknown indication

REACTIONS (4)
  - Completed suicide [Fatal]
  - Acute psychosis [Fatal]
  - Off label use [Unknown]
  - Product use in unapproved indication [Unknown]

NARRATIVE: CASE EVENT DATE: 20200902
